FAERS Safety Report 7326529-4 (Version None)
Quarter: 2011Q1

REPORT INFORMATION
  Report Type: 
  Country: None (occurrence: None)
  Receive Date: 20110222
  Receipt Date: 20110204
  Transmission Date: 20110831
  Serious: Yes (Hospitalization)
  Sender: FDA-Public Use
  Company Number: UTC-004045

PATIENT
  Age: 75 Year
  Sex: Male
  Weight: 83.9 kg

DRUGS (4)
  1. COUMADIN [Concomitant]
  2. DIURETICS (DIURETICS) [Concomitant]
  3. TYVASO [Suspect]
     Indication: PULMONARY ARTERIAL HYPERTENSION
     Dosage: (54 MCG), INHALATION
     Route: 055
     Dates: start: 20101210
  4. DIGOXIN [Concomitant]

REACTIONS (2)
  - ANAEMIA [None]
  - HEADACHE [None]
